FAERS Safety Report 5703348-3 (Version None)
Quarter: 2008Q2

REPORT INFORMATION
  Report Type: 
  Country: None (occurrence: None)
  Receive Date: 20080411
  Receipt Date: 20080407
  Transmission Date: 20081010
  Serious: Yes (Other)
  Sender: FDA-Public Use
  Company Number: FR-BOEHRINGER INGELHEIM GMBH, GERMANY-2008-DE-02074GD

PATIENT
  Sex: Male

DRUGS (8)
  1. PREDNISONE [Suspect]
     Indication: ALLERGIC GRANULOMATOUS ANGIITIS
     Dosage: 1 MG/KG/DAY FOR 3 WEEKS; THEN TAPERED DOWN TO 0.5 MG/KG/DAY, THEN TO 15 MG/DAY AND FINALLY TO THE MI
     Route: 048
  2. CYCLOPHOSPHAMIDE [Suspect]
     Indication: ALLERGIC GRANULOMATOUS ANGIITIS
     Dosage: PULSES OF 600 MG/ME2 EVERY 2 WEEKS FOR 1 MONTH, THEN EVERY 4 WEEKS THEREAFTER (A TOTAL OF 6 PULSES W
     Route: 042
  3. POTASSIUM CHLORIDE [Concomitant]
  4. CALCIUM [Concomitant]
  5. VITAMIN D3 [Concomitant]
  6. BISPHOSPHONATES [Concomitant]
     Indication: OSTEOPOROSIS PROPHYLAXIS
  7. MESNA [Concomitant]
     Indication: PROPHYLAXIS
     Route: 051
  8. MESNA [Concomitant]
     Indication: CYSTITIS HAEMORRHAGIC

REACTIONS (2)
  - BASAL CELL CARCINOMA [None]
  - PROSTATE CANCER [None]
